FAERS Safety Report 5211565-4 (Version None)
Quarter: 2007Q1

REPORT INFORMATION
  Report Type: 
  Country: None (occurrence: None)
  Receive Date: 20070116
  Receipt Date: 20070116
  Transmission Date: 20070707
  Serious: Yes (Other)
  Sender: FDA-Public Use
  Company Number: None

PATIENT
  Age: 34 Year
  Sex: Male
  Weight: 70 kg

DRUGS (1)
  1. ALEVE [Suspect]
     Indication: PAIN
     Dosage: 440 MG PO (ONCE)
     Route: 048
     Dates: start: 20061229

REACTIONS (1)
  - TYPE I HYPERSENSITIVITY [None]
